FAERS Safety Report 20032604 (Version 2)
Quarter: 2021Q4

REPORT INFORMATION
  Report Type: Spontaneous
  Country: US (occurrence: US)
  Receive Date: 20211103
  Receipt Date: 20211109
  Transmission Date: 20220303
  Serious: Yes (Other)
  Sender: FDA-Public Use
  Company Number: US-AMGEN-USASP2021170438

PATIENT
  Age: 46 Year
  Sex: Female

DRUGS (1)
  1. AIMOVIG [Suspect]
     Active Substance: ERENUMAB-AOOE
     Indication: Product used for unknown indication
     Dosage: UNK
     Route: 065

REACTIONS (30)
  - Near death experience [Unknown]
  - Haematochezia [Unknown]
  - Diabetes mellitus [Unknown]
  - Immobile [Unknown]
  - Vertigo [Unknown]
  - Migraine [Unknown]
  - Rubber sensitivity [Unknown]
  - Ear discomfort [Unknown]
  - Gait disturbance [Unknown]
  - Nausea [Unknown]
  - Gastrointestinal infection [Unknown]
  - Pain [Unknown]
  - Abdominal pain [Unknown]
  - Blood urine present [Unknown]
  - Urinary tract infection [Unknown]
  - Fungal infection [Unknown]
  - Colitis [Unknown]
  - Walking aid user [Unknown]
  - Loss of personal independence in daily activities [Unknown]
  - Vomiting [Unknown]
  - Chest pain [Unknown]
  - Fatigue [Unknown]
  - Transfusion [Unknown]
  - Gastric bypass [Unknown]
  - Fibromyalgia [Unknown]
  - Depression [Unknown]
  - Skin disorder [Unknown]
  - Visual impairment [Unknown]
  - Alopecia [Unknown]
  - Urticaria [Unknown]

NARRATIVE: CASE EVENT DATE: 20180101
